FAERS Safety Report 23599182 (Version 5)
Quarter: 2024Q2

REPORT INFORMATION
  Report Type: Report from Study
  Country: KR (occurrence: KR)
  Receive Date: 20240306
  Receipt Date: 20240410
  Transmission Date: 20240716
  Serious: Yes (Hospitalization, Other)
  Sender: FDA-Public Use
  Company Number: KR-TAKEDA-2024TUS018675

PATIENT
  Age: 52 Year
  Sex: Male
  Weight: 45 kg

DRUGS (4)
  1. BRIGATINIB [Suspect]
     Active Substance: BRIGATINIB
     Indication: Non-small cell lung cancer
     Dosage: 90 MILLIGRAM, QD
     Route: 048
     Dates: start: 20220401, end: 20220406
  2. BRIGATINIB [Suspect]
     Active Substance: BRIGATINIB
     Dosage: 180 MILLIGRAM, QD
     Route: 048
     Dates: start: 20220407, end: 20231220
  3. BRIGATINIB [Suspect]
     Active Substance: BRIGATINIB
     Dosage: 120 MILLIGRAM, QD
     Route: 048
     Dates: start: 20231226
  4. HARMONILAN [Concomitant]
     Dosage: UNK
     Route: 048
     Dates: start: 20220920

REACTIONS (1)
  - Diabetic ketoacidosis [Recovered/Resolved]

NARRATIVE: CASE EVENT DATE: 20230908
